FAERS Safety Report 17803635 (Version 1)
Quarter: 2020Q2

REPORT INFORMATION
  Report Type: Spontaneous
  Country: US (occurrence: US)
  Receive Date: 20200519
  Receipt Date: 20200519
  Transmission Date: 20200714
  Serious: Yes (Death, Hospitalization)
  Sender: FDA-Public Use
  Company Number: None

PATIENT
  Age: 75 Year
  Sex: Female
  Weight: 55.35 kg

DRUGS (7)
  1. SUMATRIPTAN 100MG [Concomitant]
     Active Substance: SUMATRIPTAN
  2. BREO ELLIPTA 200/25 MCG/INH [Concomitant]
  3. NORTRIPTYLINE  75MG [Concomitant]
  4. PROAIR HFA [Concomitant]
     Active Substance: ALBUTEROL SULFATE
  5. ALEVE [Concomitant]
     Active Substance: NAPROXEN SODIUM
  6. EMGALITY [Suspect]
     Active Substance: GALCANEZUMAB-GNLM
     Indication: MIGRAINE
     Dates: start: 20200414
  7. TRAMADOL 50MG [Concomitant]
     Active Substance: TRAMADOL

REACTIONS (13)
  - Intracranial aneurysm [None]
  - Hydrocephalus [None]
  - Hypotension [None]
  - Hypernatraemia [None]
  - Respiratory failure [None]
  - Cerebral vasoconstriction [None]
  - Subarachnoid haemorrhage [None]
  - Stress cardiomyopathy [None]
  - Intraventricular haemorrhage [None]
  - Fall [None]
  - Troponin I increased [None]
  - Pneumonia [None]
  - Subendocardial ischaemia [None]

NARRATIVE: CASE EVENT DATE: 20200514
